FAERS Safety Report 9845478 (Version 1)
Quarter: 2014Q1

REPORT INFORMATION
  Report Type: Spontaneous
  Country: TW (occurrence: TW)
  Receive Date: 20140127
  Receipt Date: 20140127
  Transmission Date: 20141002
  Serious: Yes (Death)
  Sender: FDA-Public Use
  Company Number: TW-PFIZER INC-2014019882

PATIENT
  Age: 80 Year
  Sex: Male
  Weight: 59.4 kg

DRUGS (4)
  1. IRINOTECAN HCL [Suspect]
     Indication: COLON CANCER METASTATIC
     Dosage: 144 MG/M2 (TOTAL DOSE 236 MG)
     Dates: start: 20120605
  2. FOLINIC ACID [Suspect]
     Indication: COLON CANCER METASTATIC
     Dosage: UNK
     Dates: start: 20120605
  3. FLUOROURACIL [Suspect]
     Indication: COLON CANCER METASTATIC
     Dosage: UNK
     Dates: start: 20120605
  4. AVASTIN [Suspect]
     Indication: COLON CANCER METASTATIC
     Dosage: 5 MG/KG (TOTAL DOSE 300 MG)
     Dates: start: 20120605

REACTIONS (2)
  - Tumour lysis syndrome [Fatal]
  - Renal failure acute [Fatal]
